FAERS Safety Report 11714909 (Version 1)
Quarter: 2015Q4

REPORT INFORMATION
  Report Type: Spontaneous
  Country: AU (occurrence: AU)
  Receive Date: 20151109
  Receipt Date: 20151109
  Transmission Date: 20160304
  Serious: Yes (Hospitalization, Other)
  Sender: FDA-Public Use
  Company Number: AU-GLAXOSMITHKLINE-AU2015GSK158339

PATIENT
  Age: 14 Year
  Sex: Male

DRUGS (3)
  1. VALPROATE SODIUM. [Suspect]
     Active Substance: VALPROATE SODIUM
     Indication: PETIT MAL EPILEPSY
     Dosage: 500 MG, BID
  2. LAMOTRIGINE. [Suspect]
     Active Substance: LAMOTRIGINE
     Indication: PETIT MAL EPILEPSY
     Dosage: 25 MG, BID
     Route: 065
  3. VALPROATE SODIUM. [Suspect]
     Active Substance: VALPROATE SODIUM
     Dosage: 400 MG, BID

REACTIONS (12)
  - Mucosal inflammation [Unknown]
  - Stevens-Johnson syndrome [Unknown]
  - Drug interaction [Unknown]
  - Inflammation [Unknown]
  - Pruritus [Unknown]
  - Rash [Recovered/Resolved]
  - Headache [Unknown]
  - Conjunctivitis [Unknown]
  - Dry skin [Unknown]
  - Myalgia [Unknown]
  - Pyrexia [Unknown]
  - Rash erythematous [Recovered/Resolved]
